FAERS Safety Report 16290818 (Version 3)
Quarter: 2020Q1

REPORT INFORMATION
  Report Type: Spontaneous
  Country: US (occurrence: US)
  Receive Date: 20190509
  Receipt Date: 20200106
  Transmission Date: 20200409
  Serious: No
  Sender: FDA-Public Use
  Company Number: US-PFIZER INC-2015045385

PATIENT
  Age: 74 Year
  Sex: Female
  Weight: 97.98 kg

DRUGS (7)
  1. BACLOFEN. [Concomitant]
     Active Substance: BACLOFEN
     Indication: PAIN
     Dosage: 20 MG, AS NEEDED (1 TABLET TWICE A DAY AS NEEDED FOR PAIN)
     Dates: start: 20140501
  2. MELOXICAM. [Concomitant]
     Active Substance: MELOXICAM
     Dosage: 15 MG, 1X/DAY(TAKE 1 TABLET BY MOUTH EVERY MORNING WITH MEALS)
     Route: 048
     Dates: start: 20131211
  3. TRAMADOL. [Concomitant]
     Active Substance: TRAMADOL
     Dosage: 50 MG, 4X/DAY
     Route: 048
     Dates: start: 20141228
  4. HYDROCHLOROTHIAZIDE. [Concomitant]
     Active Substance: HYDROCHLOROTHIAZIDE
     Dosage: 25 MG, 1X/DAY
     Route: 048
  5. LYRICA [Suspect]
     Active Substance: PREGABALIN
     Indication: FIBROMYALGIA
     Dosage: 75 MG, 1X/DAY
     Route: 048
     Dates: start: 20141228
  6. LYRICA [Suspect]
     Active Substance: PREGABALIN
     Dosage: 75 MG, 1-2 TIMES A DAY
  7. LYRICA [Suspect]
     Active Substance: PREGABALIN
     Dosage: 150 MG, DAILY

REACTIONS (2)
  - Fibromyalgia [Recovering/Resolving]
  - Intentional product misuse [Unknown]

NARRATIVE: CASE EVENT DATE: 20190420
